FAERS Safety Report 7603035-0 (Version None)
Quarter: 2011Q3

REPORT INFORMATION
  Report Type: 
  Country: None (occurrence: None)
  Receive Date: 20110712
  Receipt Date: 20110712
  Transmission Date: 20111222
  Serious: Yes (Other)
  Sender: FDA-Public Use
  Company Number: None

PATIENT
  Age: 31 Year
  Sex: Male
  Weight: 74.842 kg

DRUGS (1)
  1. PROPECIA [Suspect]
     Indication: ALOPECIA
     Dosage: 1 MG A DAY
     Dates: start: 20080614, end: 20081212

REACTIONS (5)
  - ECONOMIC PROBLEM [None]
  - ERECTILE DYSFUNCTION [None]
  - DEPRESSION [None]
  - DISTURBANCE IN ATTENTION [None]
  - LOSS OF LIBIDO [None]
